FAERS Safety Report 8036925-8 (Version None)
Quarter: 2012Q1

REPORT INFORMATION
  Report Type: 
  Country: None (occurrence: None)
  Receive Date: 20120111
  Receipt Date: 20120109
  Transmission Date: 20120608
  Serious: No
  Sender: FDA-Public Use
  Company Number: US-PFIZER INC-2012006387

PATIENT
  Sex: Female
  Weight: 43.991 kg

DRUGS (10)
  1. LIPITOR [Concomitant]
     Indication: BLOOD CHOLESTEROL INCREASED
     Dosage: UNK
  2. XANAX [Concomitant]
     Indication: SLEEP DISORDER
  3. CHANTIX [Suspect]
     Dosage: 1 MG, 2X/DAY
     Route: 048
     Dates: start: 20120101
  4. NEXIUM [Concomitant]
     Indication: GASTROOESOPHAGEAL REFLUX DISEASE
     Dosage: UNK
  5. CHANTIX [Suspect]
     Dosage: UNK
     Route: 048
     Dates: end: 20120108
  6. VITAMIN D [Concomitant]
     Dosage: UNK
  7. CHANTIX [Suspect]
     Indication: SMOKING CESSATION THERAPY
     Dosage: 0.5 MG, 1X/DAY
     Route: 048
     Dates: start: 20080101
  8. XANAX [Concomitant]
     Indication: PANIC ATTACK
     Dosage: UNK
  9. CHANTIX [Suspect]
     Dosage: 0.5 MG, 1X/DAY
     Route: 048
     Dates: start: 20120101
  10. FIORICET [Concomitant]
     Indication: HEADACHE
     Dosage: UNK

REACTIONS (3)
  - NAUSEA [None]
  - WHITE BLOOD CELL COUNT INCREASED [None]
  - ABNORMAL DREAMS [None]
